FAERS Safety Report 22317955 (Version 1)
Quarter: 2023Q2

REPORT INFORMATION
  Report Type: Spontaneous
  Country: DE (occurrence: DE)
  Receive Date: 20230515
  Receipt Date: 20230515
  Transmission Date: 20230721
  Serious: Yes (Other)
  Sender: FDA-Public Use
  Company Number: DE-CADRBFARM-2022278949

PATIENT
  Age: 44 Year
  Sex: Male
  Weight: 80 kg

DRUGS (1)
  1. MOXIFLOXACIN [Suspect]
     Active Substance: MOXIFLOXACIN
     Indication: Pneumonitis
     Dosage: 5 DOSAGE FORM, TOTAL (5 TABLETTEN A 400MG)
     Route: 048
     Dates: start: 20171012

REACTIONS (22)
  - Toxicity to various agents [Unknown]
  - Autonomic neuropathy [Unknown]
  - Mitochondrial cytopathy [Unknown]
  - Fatigue [Not Recovered/Not Resolved]
  - Burning sensation [Not Recovered/Not Resolved]
  - Muscle discomfort [Not Recovered/Not Resolved]
  - Sick leave [Unknown]
  - Muscular weakness [Not Recovered/Not Resolved]
  - Tendon disorder [Unknown]
  - Dysbiosis [Unknown]
  - Loss of personal independence in daily activities [Unknown]
  - Enteritis [Unknown]
  - Enthesopathy [Unknown]
  - Myalgia [Unknown]
  - Tendonitis [Unknown]
  - Chronic fatigue syndrome [Unknown]
  - Arthropathy [Unknown]
  - Postural orthostatic tachycardia syndrome [Unknown]
  - Collagen disorder [Unknown]
  - Myofascial pain syndrome [Unknown]
  - Small fibre neuropathy [Unknown]
  - Mobility decreased [Unknown]

NARRATIVE: CASE EVENT DATE: 20180204
